FAERS Safety Report 23188185 (Version 1)
Quarter: 2023Q4

REPORT INFORMATION
  Report Type: Report from Study
  Country: US (occurrence: US)
  Receive Date: 20231115
  Receipt Date: 20231115
  Transmission Date: 20240109
  Serious: Yes (Other)
  Sender: FDA-Public Use
  Company Number: US-JNJFOC-20231073959

PATIENT
  Age: 59 Year
  Sex: Female

DRUGS (1)
  1. SPRAVATO [Suspect]
     Active Substance: ESKETAMINE
     Indication: Product used for unknown indication
     Dosage: SECOND DOSE - 24-OCT-2023
     Dates: start: 20231021

REACTIONS (4)
  - Delirium [Unknown]
  - Pollakiuria [Unknown]
  - Balance disorder [Unknown]
  - Hunger [Unknown]

NARRATIVE: CASE EVENT DATE: 20230101
